FAERS Safety Report 8215505-5 (Version None)
Quarter: 2012Q1

REPORT INFORMATION
  Report Type: 
  Country: None (occurrence: None)
  Receive Date: 20120229
  Receipt Date: 20111209
  Transmission Date: 20120608
  Serious: Yes (Hospitalization)
  Sender: FDA-Public Use
  Company Number: PHEH2011US010483

PATIENT
  Age: 51 Year
  Sex: Male

DRUGS (1)
  1. NEORAL [Suspect]
     Indication: RENAL TRANSPLANT
     Dosage: 100 MG, BID, ORAL
     Route: 048
     Dates: start: 20110607

REACTIONS (5)
  - PAIN [None]
  - ASTHENIA [None]
  - MALAISE [None]
  - PNEUMONIA [None]
  - HEADACHE [None]
